FAERS Safety Report 24553260 (Version 1)
Quarter: 2024Q4

REPORT INFORMATION
  Report Type: Spontaneous
  Country: US (occurrence: US)
  Receive Date: 20241028
  Receipt Date: 20241028
  Transmission Date: 20250115
  Serious: Yes (Hospitalization)
  Sender: STRIDES
  Company Number: US-STRIDES ARCOLAB LIMITED-2024SP013766

PATIENT
  Age: 74 Year
  Sex: Male

DRUGS (12)
  1. METHOTREXATE [Suspect]
     Active Substance: METHOTREXATE
     Indication: Product used for unknown indication
     Dosage: 15 MILLIGRAM, ONCE A WEEK
     Route: 065
  2. METHOTREXATE [Suspect]
     Active Substance: METHOTREXATE
     Dosage: 30 MILLIGRAM, ONCE A WEEK
     Route: 065
  3. AMOXICILLIN [Suspect]
     Active Substance: AMOXICILLIN
     Indication: Oropharyngeal pain
     Dosage: UNK
     Route: 065
  4. VANCOMYCIN [Concomitant]
     Active Substance: VANCOMYCIN
     Indication: Cellulitis
     Dosage: UNK, SINGLE (ONE DOSE)
     Route: 042
  5. PIPERACILLIN AND TAZOBACTAM [Concomitant]
     Active Substance: PIPERACILLIN SODIUM\TAZOBACTAM SODIUM
     Indication: Cellulitis
     Dosage: UNK, SINGLE (ONE DOSE)
     Route: 042
  6. CLINDAMYCIN [Concomitant]
     Active Substance: CLINDAMYCIN
     Indication: Cellulitis
     Dosage: UNK
     Route: 065
  7. ETANERCEPT [Concomitant]
     Active Substance: ETANERCEPT
     Indication: Stevens-Johnson syndrome
     Dosage: UNK
     Route: 065
  8. AZTREONAM [Concomitant]
     Active Substance: AZTREONAM
     Indication: Evidence based treatment
     Dosage: UNK
     Route: 065
  9. DOXYCYCLINE [Concomitant]
     Active Substance: DOXYCYCLINE
     Indication: Evidence based treatment
     Dosage: UNK
     Route: 065
  10. LINEZOLID [Concomitant]
     Active Substance: LINEZOLID
     Indication: Evidence based treatment
     Dosage: UNK
     Route: 065
  11. METRONIDAZOLE [Concomitant]
     Active Substance: METRONIDAZOLE
     Indication: Evidence based treatment
     Dosage: UNK
     Route: 065
  12. MOXIFLOXACIN [Concomitant]
     Active Substance: MOXIFLOXACIN
     Indication: Eye disorder
     Dosage: UNK

REACTIONS (13)
  - Combined immunodeficiency [Unknown]
  - Bone marrow failure [Unknown]
  - Haemodynamic instability [Unknown]
  - Leukocytosis [Unknown]
  - Eosinophilia [Unknown]
  - Wrong dose [Unknown]
  - Pancytopenia [Recovered/Resolved]
  - Leukopenia [Recovered/Resolved]
  - Candida infection [Unknown]
  - Anaemia [Unknown]
  - Thrombocytopenia [Unknown]
  - Toxicity to various agents [Unknown]
  - Off label use [Unknown]
